FAERS Safety Report 21970010 (Version 1)
Quarter: 2023Q1

REPORT INFORMATION
  Report Type: Spontaneous
  Country: US (occurrence: US)
  Receive Date: 20230209
  Receipt Date: 20230209
  Transmission Date: 20230418
  Serious: Yes (Other)
  Sender: FDA-Public Use
  Company Number: US-SUN PHARMACEUTICAL INDUSTRIES LTD-2023R1-377077

PATIENT
  Age: 70 Year
  Sex: Female

DRUGS (1)
  1. OCTREOTIDE [Suspect]
     Active Substance: OCTREOTIDE
     Indication: Chylothorax
     Dosage: UNK (50 MCG/HR)
     Route: 065

REACTIONS (3)
  - Cardiac arrest [Recovered/Resolved]
  - Atrioventricular block first degree [Recovered/Resolved]
  - Sinus bradycardia [Recovered/Resolved]
